FAERS Safety Report 6839690-2 (Version None)
Quarter: 2010Q2

REPORT INFORMATION
  Report Type: 
  Country: None (occurrence: None)
  Receive Date: 20100629
  Receipt Date: 20100301
  Transmission Date: 20101027
  Serious: No
  Sender: FDA-Public Use
  Company Number: US-WYE-H13577810

PATIENT
  Sex: Female

DRUGS (2)
  1. PRISTIQ [Suspect]
     Dosage: 100 MG, FREQUENCY
  2. BUSPAR [Suspect]

REACTIONS (4)
  - GLAUCOMA [None]
  - OPTIC ATROPHY [None]
  - VISION BLURRED [None]
  - VISUAL ACUITY REDUCED [None]
